FAERS Safety Report 13048100 (Version 1)
Quarter: 2016Q4

REPORT INFORMATION
  Report Type: Spontaneous
  Country: US (occurrence: US)
  Receive Date: 20161220
  Receipt Date: 20161220
  Transmission Date: 20170207
  Serious: No
  Sender: FDA-Public Use
  Company Number: None

PATIENT
  Age: 1 Year
  Sex: Male
  Weight: 10.9 kg

DRUGS (1)
  1. NUWIQ [Suspect]
     Active Substance: ANTIHEMOPHILIC FACTOR, HUMAN RECOMBINANT
     Indication: HAEMOPHILIA
     Dosage: ?          OTHER FREQUENCY:EVERY OTHER DAY;?
     Route: 040
     Dates: start: 20161101

REACTIONS (2)
  - Enzyme inhibition [None]
  - Coagulopathy [None]

NARRATIVE: CASE EVENT DATE: 20161212
